FAERS Safety Report 6645379-5 (Version None)
Quarter: 2010Q1

REPORT INFORMATION
  Report Type: 
  Country: None (occurrence: None)
  Receive Date: 20100322
  Receipt Date: 20100310
  Transmission Date: 20100710
  Serious: Yes (Hospitalization)
  Sender: FDA-Public Use
  Company Number: NL-MERCK-1003NLD00002

PATIENT
  Age: 37 Year
  Sex: Male

DRUGS (1)
  1. PROSCAR [Suspect]
     Indication: ALOPECIA
     Route: 048
     Dates: start: 20000101, end: 20091201

REACTIONS (3)
  - ARRHYTHMIA [None]
  - DISTURBANCE IN ATTENTION [None]
  - PANIC DISORDER [None]
